FAERS Safety Report 12649362 (Version 2)
Quarter: 2016Q3

REPORT INFORMATION
  Report Type: Spontaneous
  Country: AU (occurrence: AU)
  Receive Date: 20160812
  Receipt Date: 20160902
  Transmission Date: 20161109
  Serious: Yes (Other)
  Sender: FDA-Public Use
  Company Number: AU-MYLANLABS-2016M1033819

PATIENT

DRUGS (5)
  1. METFORMIN [Suspect]
     Active Substance: METFORMIN HYDROCHLORIDE
     Indication: WEIGHT INCREASED
     Dosage: 500 MG, AM
     Route: 048
  2. METFORMIN [Suspect]
     Active Substance: METFORMIN HYDROCHLORIDE
     Dosage: 1500 MG, BID
     Route: 048
  3. METFORMIN [Suspect]
     Active Substance: METFORMIN HYDROCHLORIDE
     Dosage: 500 MG, BID
     Route: 048
  4. CLOZAPINE. [Suspect]
     Active Substance: CLOZAPINE
     Indication: SCHIZOPHRENIA
  5. CLOZAPINE. [Suspect]
     Active Substance: CLOZAPINE
     Indication: INTELLECTUAL DISABILITY

REACTIONS (5)
  - Neutrophilia [Unknown]
  - Pancreatitis relapsing [Recovered/Resolved]
  - Off label use [Unknown]
  - Vomiting [Recovered/Resolved]
  - Nausea [Recovered/Resolved]
